FAERS Safety Report 6285187-0 (Version None)
Quarter: 2009Q3

REPORT INFORMATION
  Report Type: 
  Country: None (occurrence: None)
  Receive Date: 20090727
  Receipt Date: 20090714
  Transmission Date: 20100115
  Serious: Yes (Other)
  Sender: FDA-Public Use
  Company Number: PHHY2009GB29496

PATIENT
  Sex: Male

DRUGS (3)
  1. CLOZARIL [Suspect]
     Indication: SCHIZOPHRENIA
     Dosage: UNK
     Dates: start: 20050201
  2. AMISULPRIDE [Suspect]
  3. ARIPIPRAZOLE [Concomitant]

REACTIONS (3)
  - BLOOD PROLACTIN INCREASED [None]
  - MENTAL IMPAIRMENT [None]
  - SEXUAL DYSFUNCTION [None]
